FAERS Safety Report 9587952 (Version 3)
Quarter: 2014Q1

REPORT INFORMATION
  Report Type: Report from Study
  Country: HU (occurrence: HU)
  Receive Date: 20131003
  Receipt Date: 20140205
  Transmission Date: 20141002
  Serious: Yes (Hospitalization)
  Sender: FDA-Public Use
  Company Number: HU-TAKEDA-2013TUS000902

PATIENT
  Sex: 0

DRUGS (8)
  1. FEBUXOSTAT [Suspect]
     Indication: TUMOUR LYSIS SYNDROME
     Dosage: 120 MG, QD
     Route: 048
     Dates: start: 20130907, end: 20130913
  2. ENOXAPARIN [Concomitant]
     Indication: PROPHYLAXIS
     Dosage: 40 MG, QD
     Route: 058
     Dates: start: 20130809, end: 20130918
  3. TAMSULOSIN [Concomitant]
     Indication: BENIGN PROSTATIC HYPERPLASIA
     Dosage: 0.4 MG, QD
     Route: 048
     Dates: start: 20130401
  4. METHYL PREDNISOLON [Concomitant]
     Indication: HYPERTHERMIA MALIGNANT
     Dosage: 32 MG, 1 IN 1 DAY
     Route: 048
     Dates: start: 20130904
  5. FAMOTIDIN [Concomitant]
     Indication: PROPHYLAXIS
     Dosage: 40 MG, 1 IN 1 DAY
     Route: 048
     Dates: start: 20130906
  6. CISPLATIN [Concomitant]
     Indication: CHEMOTHERAPY
     Dosage: UNK
     Dates: start: 20130909, end: 20130913
  7. PEGFILGRASTIM [Concomitant]
     Indication: PROPHYLAXIS
     Dosage: 6 MG, 1 IN 1 DAY
     Route: 058
     Dates: start: 20130913, end: 20130913
  8. PLATELETS [Concomitant]
     Indication: THROMBOCYTOPENIA
     Dosage: 4 IU, 1 IN 1 DAY
     Route: 042
     Dates: start: 20130919, end: 20130919

REACTIONS (1)
  - Hypovolaemia [Recovered/Resolved]
